FAERS Safety Report 20760076 (Version 1)
Quarter: 2022Q2

REPORT INFORMATION
  Report Type: Report from Study
  Country: US (occurrence: US)
  Receive Date: 20220428
  Receipt Date: 20220428
  Transmission Date: 20220721
  Serious: Yes (Other)
  Sender: FDA-Public Use
  Company Number: US-BEH-2022144570

PATIENT
  Age: 52 Year
  Sex: Female

DRUGS (3)
  1. HIZENTRA [Suspect]
     Active Substance: HUMAN IMMUNOGLOBULIN G
     Indication: Chronic inflammatory demyelinating polyradiculoneuropathy
     Dosage: 20 GRAM, QW, OVER 2 DAYS
     Route: 058
     Dates: start: 2020
  2. TYLENOL [Concomitant]
     Active Substance: ACETAMINOPHEN
     Indication: Premedication
     Route: 065
  3. LORATADINE\PSEUDOEPHEDRINE SULFATE [Concomitant]
     Active Substance: LORATADINE\PSEUDOEPHEDRINE SULFATE
     Indication: Premedication
     Route: 065

REACTIONS (11)
  - Chronic inflammatory demyelinating polyradiculoneuropathy [Unknown]
  - Stress [Unknown]
  - Fatigue [Unknown]
  - Illness [Unknown]
  - Infusion site erythema [Unknown]
  - Infusion site swelling [Unknown]
  - Infusion site pruritus [Unknown]
  - Headache [Unknown]
  - Asthma [Unknown]
  - Chest discomfort [Unknown]
  - Face oedema [Unknown]

NARRATIVE: CASE EVENT DATE: 20200101
